FAERS Safety Report 11937909 (Version 1)
Quarter: 2016Q1

REPORT INFORMATION
  Report Type: Spontaneous
  Country: US (occurrence: US)
  Receive Date: 20160122
  Receipt Date: 20160122
  Transmission Date: 20160526
  Serious: No
  Sender: FDA-Public Use
  Company Number: US-BIOGEN-2016BI00171645

PATIENT
  Sex: Male

DRUGS (1)
  1. TECFIDERA [Suspect]
     Active Substance: DIMETHYL FUMARATE
     Indication: MULTIPLE SCLEROSIS
     Route: 048
     Dates: start: 20140121

REACTIONS (6)
  - Depressed mood [Unknown]
  - Frustration tolerance decreased [Unknown]
  - Drug effect incomplete [Not Recovered/Not Resolved]
  - Dysgraphia [Not Recovered/Not Resolved]
  - Limb discomfort [Unknown]
  - General physical health deterioration [Unknown]
